FAERS Safety Report 5722876-8 (Version None)
Quarter: 2008Q2

REPORT INFORMATION
  Report Type: 
  Country: None (occurrence: None)
  Receive Date: 20080425
  Receipt Date: 20080415
  Transmission Date: 20081010
  Serious: Yes (Death)
  Sender: FDA-Public Use
  Company Number: AZAUS200800090

PATIENT
  Sex: Female

DRUGS (1)
  1. VIDAZA [Suspect]
     Dates: start: 20080301, end: 20080301

REACTIONS (1)
  - MUSCLE SPASMS [None]
